FAERS Safety Report 16057081 (Version 1)
Quarter: 2019Q2

REPORT INFORMATION
  Report Type: Spontaneous
  Country: US (occurrence: US)
  Receive Date: 20190311
  Receipt Date: 20190311
  Transmission Date: 20190711
  Serious: Yes (Hospitalization)
  Sender: FDA-Public Use
  Company Number: None

PATIENT
  Sex: Male

DRUGS (3)
  1. NITROSTAT, PLAVIX, METHOTREXATE, NEXIUM, BISOPRL/HCTZ [Concomitant]
  2. HUMIRA [Suspect]
     Active Substance: ADALIMUMAB
     Indication: MYOCARDIAL ISCHAEMIA
     Dosage: ?          OTHER FREQUENCY:EVERY 2 WEEKS;?
     Route: 058
     Dates: start: 20170131
  3. BIOTIN, COQ10, PROAIR, TYLENOL, COLACE, VITD3, CENTRUM [Concomitant]

REACTIONS (2)
  - Fall [None]
  - Spinal fracture [None]
